FAERS Safety Report 13613653 (Version 4)
Quarter: 2017Q3

REPORT INFORMATION
  Report Type: Spontaneous
  Country: US (occurrence: US)
  Receive Date: 20170605
  Receipt Date: 20170820
  Transmission Date: 20171127
  Serious: Yes (Hospitalization, Other)
  Sender: FDA-Public Use
  Company Number: US-MYLANLABS-2017M1033239

PATIENT

DRUGS (9)
  1. CLOZAPINE. [Suspect]
     Active Substance: CLOZAPINE
     Indication: PSYCHOTIC DISORDER
     Dosage: 150 MG, BID
  2. QUETIAPINE. [Concomitant]
     Active Substance: QUETIAPINE
     Indication: SCHIZOAFFECTIVE DISORDER
     Dosage: UNK
  3. CLOZAPINE. [Suspect]
     Active Substance: CLOZAPINE
     Dosage: 75 MG, BID
  4. CLOZAPINE. [Suspect]
     Active Substance: CLOZAPINE
     Indication: SCHIZOAFFECTIVE DISORDER
     Dosage: 25 MG, QD
  5. CLOZAPINE. [Suspect]
     Active Substance: CLOZAPINE
     Indication: TARDIVE DYSKINESIA
     Dosage: 275 MG, UNK
  6. METOPROLOL. [Suspect]
     Active Substance: METOPROLOL
     Dosage: 12.5 MG, BID
     Route: 042
  7. CLOZAPINE. [Suspect]
     Active Substance: CLOZAPINE
     Indication: VON WILLEBRAND^S DISEASE
     Dosage: 25 MG, QD
  8. METOPROLOL. [Suspect]
     Active Substance: METOPROLOL
     Indication: ATRIAL FLUTTER
     Dosage: UNK
     Route: 042
  9. QUETIAPINE. [Concomitant]
     Active Substance: QUETIAPINE
     Indication: TARDIVE DYSKINESIA

REACTIONS (5)
  - Atrial flutter [Recovered/Resolved]
  - Drug intolerance [Unknown]
  - Antipsychotic drug level decreased [Unknown]
  - Product use in unapproved indication [Unknown]
  - Hypotension [Unknown]
